FAERS Safety Report 7053641-X (Version None)
Quarter: 2010Q4

REPORT INFORMATION
  Report Type: 
  Country: None (occurrence: None)
  Receive Date: 20101020
  Receipt Date: 20101013
  Transmission Date: 20110411
  Serious: Yes (Other)
  Sender: FDA-Public Use
  Company Number: DE-ROCHE-734857

PATIENT
  Age: 80 Year
  Sex: Female

DRUGS (1)
  1. VALIUM [Suspect]
     Indication: SLEEP DISORDER
     Route: 048

REACTIONS (3)
  - IIIRD NERVE PARALYSIS [None]
  - MIGRAINE [None]
  - VERTIGO [None]
